FAERS Safety Report 12906285 (Version 1)
Quarter: 2016Q4

REPORT INFORMATION
  Report Type: Spontaneous
  Country: US (occurrence: US)
  Receive Date: 20161102
  Receipt Date: 20161102
  Transmission Date: 20170207
  Serious: No
  Sender: FDA-Public Use
  Company Number: None

PATIENT
  Sex: Female
  Weight: 63.56 kg

DRUGS (5)
  1. ZINC WITH D3 [Concomitant]
  2. CIPRO [Suspect]
     Active Substance: CIPROFLOXACIN HYDROCHLORIDE
  3. CALCIUM [Concomitant]
     Active Substance: CALCIUM
  4. MAGNESIUM [Concomitant]
     Active Substance: MAGNESIUM
  5. METRONIDAZOLE. [Suspect]
     Active Substance: METRONIDAZOLE
     Indication: DIVERTICULITIS

REACTIONS (11)
  - Dysgeusia [None]
  - Diarrhoea [None]
  - Anosmia [None]
  - Ageusia [None]
  - Decreased appetite [None]
  - Thirst decreased [None]
  - Tongue discolouration [None]
  - Fatigue [None]
  - Feeling abnormal [None]
  - Nausea [None]
  - Nasopharyngitis [None]
